FAERS Safety Report 8086851-3 (Version None)
Quarter: 2012Q1

REPORT INFORMATION
  Report Type: 
  Country: None (occurrence: None)
  Receive Date: 20120128
  Receipt Date: 20110519
  Transmission Date: 20120608
  Serious: No
  Sender: FDA-Public Use
  Company Number: US-ABBOTT-11P-163-0727118-00

PATIENT
  Age: 69 Year
  Sex: Female

DRUGS (8)
  1. HUMIRA [Suspect]
     Indication: RHEUMATOID ARTHRITIS
     Dates: start: 20110505
  2. PROTONIX [Concomitant]
     Indication: GASTROOESOPHAGEAL REFLUX DISEASE
  3. ZYRTEC [Concomitant]
     Indication: HYPERSENSITIVITY
  4. ARIMIDEX [Concomitant]
     Indication: NEOPLASM MALIGNANT
  5. KEFLEX [Concomitant]
     Indication: URINARY TRACT INFECTION
  6. PLAQUENIL [Concomitant]
     Indication: RHEUMATOID ARTHRITIS
  7. ZANTAC [Concomitant]
     Indication: PRODUCT USED FOR UNKNOWN INDICATION
  8. LISINOPRIL [Concomitant]
     Indication: BLOOD PRESSURE

REACTIONS (4)
  - GASTROENTERITIS VIRAL [None]
  - ORAL HERPES [None]
  - VOMITING [None]
  - DIARRHOEA [None]
